FAERS Safety Report 4450800-7 (Version None)
Quarter: 2004Q3

REPORT INFORMATION
  Report Type: 
  Country: None (occurrence: None)
  Receive Date: 20040913
  Receipt Date: 20040514
  Transmission Date: 20050211
  Serious: No
  Sender: FDA-Public Use
  Company Number: 2004-BP-03761BP(0)

PATIENT
  Age: 75 Year
  Sex: Male

DRUGS (6)
  1. SPIRIVA [Suspect]
     Indication: EMPHYSEMA
     Dosage: 18 MCG (18 MCG), IH
     Dates: start: 20040512
  2. THEO-DUR [Concomitant]
  3. FLORIDIL [Concomitant]
  4. LASIX (LASIX [Concomitant]
  5. HUMIBID (GUAIFENESIN) [Concomitant]
  6. ALBUTEROL [Concomitant]

REACTIONS (1)
  - DRUG INEFFECTIVE [None]
